FAERS Safety Report 17791035 (Version 1)
Quarter: 2020Q2

REPORT INFORMATION
  Report Type: Spontaneous
  Country: ES (occurrence: ES)
  Receive Date: 20200514
  Receipt Date: 20200514
  Transmission Date: 20200714
  Serious: Yes (Hospitalization, Other)
  Sender: FDA-Public Use
  Company Number: ES-AUROBINDO-AUR-APL-2020-024668

PATIENT
  Age: 54 Year
  Sex: Female

DRUGS (5)
  1. METAMIZOLE [Interacting]
     Active Substance: METAMIZOLE
     Indication: RENAL COLIC
     Dosage: 3 DOSAGE FORM, ONCE A DAY
     Route: 048
     Dates: start: 20170424, end: 20170428
  2. ALPRAZOLAM. [Concomitant]
     Active Substance: ALPRAZOLAM
     Indication: PRODUCT USED FOR UNKNOWN INDICATION
     Dosage: 0.5 MILLIGRAM, ONCE A DAY
     Route: 048
  3. PAROXETINE. [Suspect]
     Active Substance: PAROXETINE
     Indication: PRODUCT USED FOR UNKNOWN INDICATION
     Dosage: 20 MILLIGRAM, ONCE A DAY
     Route: 048
     Dates: start: 20110117
  4. PARACETAMOL [Concomitant]
     Active Substance: ACETAMINOPHEN
     Indication: RENAL COLIC
     Dosage: 3 GRAM, ONCE A DAY
     Route: 048
     Dates: start: 20170413
  5. IBUPROFEN. [Interacting]
     Active Substance: IBUPROFEN
     Indication: RENAL COLIC
     Dosage: 1.8 GRAM, ONCE A DAY
     Route: 048
     Dates: start: 20170413, end: 20170428

REACTIONS (1)
  - Upper gastrointestinal haemorrhage [Recovered/Resolved]

NARRATIVE: CASE EVENT DATE: 20170428
